FAERS Safety Report 22018245 (Version 2)
Quarter: 2023Q1

REPORT INFORMATION
  Report Type: Report from Study
  Country: BE (occurrence: BE)
  Receive Date: 20230221
  Receipt Date: 20230228
  Transmission Date: 20230417
  Serious: Yes (Hospitalization)
  Sender: FDA-Public Use
  Company Number: BE-GENMAB-2023-00266

PATIENT
  Age: 38 Year
  Sex: Female
  Weight: 61 kg

DRUGS (15)
  1. TISOTUMAB VEDOTIN [Suspect]
     Active Substance: TISOTUMAB VEDOTIN
     Indication: Cervix cancer metastatic
     Dosage: 2 MG/KG, Q3WEEKS
     Route: 042
     Dates: start: 20221202, end: 20221202
  2. TISOTUMAB VEDOTIN [Suspect]
     Active Substance: TISOTUMAB VEDOTIN
     Dosage: 1.3 MG/KG, Q3WEEKS
     Route: 042
     Dates: start: 20221229, end: 20230120
  3. PEMBROLIZUMAB [Suspect]
     Active Substance: PEMBROLIZUMAB
     Indication: Cervix cancer metastatic
     Dosage: 200 MILLIGRAM, 1Q3W
     Route: 042
     Dates: start: 20221202, end: 20221202
  4. PEMBROLIZUMAB [Suspect]
     Active Substance: PEMBROLIZUMAB
     Dosage: 200 MILLIGRAM, 1Q3W
     Route: 042
     Dates: start: 20221229, end: 20230120
  5. CARBOPLATIN [Suspect]
     Active Substance: CARBOPLATIN
     Indication: Cervix cancer metastatic
     Dosage: 5 AUC, 1Q3W
     Route: 042
     Dates: start: 20221202, end: 20221202
  6. CARBOPLATIN [Suspect]
     Active Substance: CARBOPLATIN
     Dosage: 4 AUC, 1Q3W
     Route: 042
     Dates: start: 20221229, end: 20230120
  7. HYALURONATE SODIUM\TREHALOSE [Concomitant]
     Active Substance: HYALURONATE SODIUM\TREHALOSE
     Indication: Premedication
     Dosage: 1 DROP (BOTH EYES), QID
     Route: 047
     Dates: start: 20221129
  8. PRIMPERAN [Concomitant]
     Active Substance: METOCLOPRAMIDE HYDROCHLORIDE
     Indication: Nausea
     Dosage: 15 MILLILITER, TID
     Route: 048
     Dates: start: 20221203, end: 20230209
  9. PANTOPRAZOLE SODIUM [Concomitant]
     Active Substance: PANTOPRAZOLE SODIUM
     Indication: Nausea
     Dosage: 40 MILLIGRAM, PRN
     Route: 048
     Dates: start: 20221225, end: 20230209
  10. ULTRA K [Concomitant]
     Indication: Hypokalaemia
     Dosage: 15 MILLILITER, TID
     Route: 048
     Dates: start: 20221224
  11. HUMAN RED BLOOD CELL [Concomitant]
     Active Substance: HUMAN RED BLOOD CELL
     Indication: Anaemia
     Dosage: 1 INTERNATIONAL UNIT, QD
     Route: 042
     Dates: start: 20230210, end: 20230210
  12. HUMAN RED BLOOD CELL [Concomitant]
     Active Substance: HUMAN RED BLOOD CELL
     Dosage: 1 INTERNATIONAL UNIT, QD
     Route: 042
     Dates: start: 20230214, end: 20230214
  13. FURADANTIN [Concomitant]
     Active Substance: NITROFURANTOIN
     Indication: Urinary tract infection
     Dosage: 100 MILLIGRAM, SINGLE
     Route: 048
     Dates: start: 202302, end: 202302
  14. FOSFOMYCIN [Concomitant]
     Active Substance: FOSFOMYCIN
     Indication: Urinary tract infection
     Dosage: 3 GRAM, SINGLE
     Route: 048
     Dates: start: 202302, end: 202302
  15. MEROPENEM [Concomitant]
     Active Substance: MEROPENEM
     Indication: Urinary tract infection
     Dosage: 1 GRAM, TID
     Route: 042
     Dates: start: 20230213

REACTIONS (1)
  - Thrombocytopenia [Recovered/Resolved]

NARRATIVE: CASE EVENT DATE: 20230210
